FAERS Safety Report 7013044-0 (Version None)
Quarter: 2010Q3

REPORT INFORMATION
  Report Type: 
  Country: None (occurrence: None)
  Receive Date: 20100924
  Receipt Date: 20100915
  Transmission Date: 20110219
  Serious: Yes (Other)
  Sender: FDA-Public Use
  Company Number: US-PFIZER INC-2010117317

PATIENT
  Sex: Male

DRUGS (1)
  1. CHANTIX [Suspect]
     Dosage: UNK
     Dates: start: 20081001

REACTIONS (5)
  - AGGRESSION [None]
  - DEPRESSION [None]
  - INTENTIONAL SELF-INJURY [None]
  - LOSS OF CONSCIOUSNESS [None]
  - SUICIDE ATTEMPT [None]
